FAERS Safety Report 8830810 (Version 2)
Quarter: 2012Q4

REPORT INFORMATION
  Report Type: 
  Country: US (occurrence: ZA)
  Receive Date: 20121009
  Receipt Date: 20121010
  Transmission Date: 20130627
  Serious: Yes (Other)
  Sender: FDA-Public Use
  Company Number: ZA-BAYER-2012-101597

PATIENT
  Age: 29 Year
  Sex: Male
  Weight: 53.4 kg

DRUGS (2)
  1. MOXIFLOXACIN ORAL [Suspect]
     Indication: PULMONARY TUBERCULOSIS
     Dosage: UNK
     Route: 048
     Dates: start: 20120914, end: 20120920
  2. TROPICAMIDE [Concomitant]
     Indication: MYDRIASIS
     Dosage: 4 drops
     Route: 047
     Dates: start: 20120913, end: 20120913

REACTIONS (1)
  - Atrioventricular block second degree [Not Recovered/Not Resolved]
